FAERS Safety Report 23484822 (Version 1)
Quarter: 2024Q1

REPORT INFORMATION
  Report Type: Report from Study
  Country: US (occurrence: US)
  Receive Date: 20240206
  Receipt Date: 20240206
  Transmission Date: 20240409
  Serious: No
  Sender: FDA-Public Use
  Company Number: US-ORG100014127-2023000210

PATIENT
  Age: 59 Year
  Sex: Male

DRUGS (1)
  1. LYSODREN [Suspect]
     Active Substance: MITOTANE
     Indication: Adrenal gland cancer
     Dosage: 4 TABLETS BY MOUTH THREE TIMES DAILY
     Route: 048
     Dates: start: 20220910

REACTIONS (1)
  - Influenza like illness [Unknown]
